FAERS Safety Report 18263848 (Version 14)
Quarter: 2025Q1

REPORT INFORMATION
  Report Type: Report from Study
  Country: US (occurrence: US)
  Receive Date: 20200914
  Receipt Date: 20250317
  Transmission Date: 20250409
  Serious: Yes (Hospitalization, Other)
  Sender: TAKEDA
  Company Number: US-SHIRE-US202029543

PATIENT
  Sex: Female
  Weight: 81.63 kg

DRUGS (27)
  1. HUMAN IMMUNOGLOBULIN G [Suspect]
     Active Substance: HUMAN IMMUNOGLOBULIN G
     Indication: Immunodeficiency common variable
     Dosage: 14 GRAM, 1/WEEK
     Dates: start: 20191214
  2. HUMAN IMMUNOGLOBULIN G [Suspect]
     Active Substance: HUMAN IMMUNOGLOBULIN G
     Dosage: 10 GRAM, 1/WEEK
  3. HUMAN IMMUNOGLOBULIN G [Suspect]
     Active Substance: HUMAN IMMUNOGLOBULIN G
     Dosage: 10 GRAM, 1/WEEK
  4. HUMAN IMMUNOGLOBULIN G [Suspect]
     Active Substance: HUMAN IMMUNOGLOBULIN G
     Dosage: 10 GRAM, Q2WEEKS
  5. HUMAN IMMUNOGLOBULIN G [Suspect]
     Active Substance: HUMAN IMMUNOGLOBULIN G
     Dosage: 10 GRAM, 1/WEEK
  6. ACETAMINOPHEN [Concomitant]
     Active Substance: ACETAMINOPHEN
  7. CLARITIN [Concomitant]
     Active Substance: LORATADINE
  8. CVS coenzyme q 10 [Concomitant]
  9. PRAVASTATIN SODIUM [Concomitant]
     Active Substance: PRAVASTATIN SODIUM
  10. MINERALS\VITAMINS [Concomitant]
     Active Substance: MINERALS\VITAMINS
  11. HYDROCHLOROTHIAZIDE [Concomitant]
     Active Substance: HYDROCHLOROTHIAZIDE
  12. SYNTHROID [Concomitant]
     Active Substance: LEVOTHYROXINE SODIUM
  13. AMITRIPTYLINE HYDROCHLORIDE [Concomitant]
     Active Substance: AMITRIPTYLINE HYDROCHLORIDE
  14. AMITRIPTYLINE [Concomitant]
     Active Substance: AMITRIPTYLINE
  15. LISINOPRIL [Concomitant]
     Active Substance: LISINOPRIL
  16. VITAMIN D3 [Concomitant]
     Active Substance: CHOLECALCIFEROL
     Indication: Product used for unknown indication
  17. DIPHENHYDRAMINE HYDROCHLORIDE [Concomitant]
     Active Substance: DIPHENHYDRAMINE HYDROCHLORIDE
  18. Lmx [Concomitant]
  19. ASPIRIN [Concomitant]
     Active Substance: ASPIRIN
  20. DIPHENHYDRAMINE [Concomitant]
     Active Substance: DIPHENHYDRAMINE
  21. EPINEPHRINE [Concomitant]
     Active Substance: EPINEPHRINE
  22. ZINC [Concomitant]
     Active Substance: ZINC
  23. CALCIUM [Concomitant]
     Active Substance: CALCIUM
  24. LUTEIN [Concomitant]
     Active Substance: LUTEIN
  25. .GAMMA.-AMINOBUTYRIC ACID [Concomitant]
     Active Substance: .GAMMA.-AMINOBUTYRIC ACID
  26. COENZYME Q10 [Concomitant]
     Active Substance: DIETARY SUPPLEMENT\UBIDECARENONE
  27. FOLIC ACID [Concomitant]
     Active Substance: FOLIC ACID

REACTIONS (15)
  - COVID-19 [Unknown]
  - Haemoglobin decreased [Unknown]
  - Foreign body aspiration [Unknown]
  - Pneumonia [Unknown]
  - Pneumonitis [Unknown]
  - Leukaemia [Unknown]
  - Respiratory failure [Unknown]
  - Atrial fibrillation [Unknown]
  - Urinary tract infection [Unknown]
  - Bronchitis [Unknown]
  - Weight increased [Unknown]
  - Product dose omission issue [Unknown]
  - Product distribution issue [Unknown]
  - Sinusitis [Unknown]
  - Influenza [Unknown]
